FAERS Safety Report 21075073 (Version 1)
Quarter: 2022Q3

REPORT INFORMATION
  Report Type: Spontaneous
  Country: US (occurrence: None)
  Receive Date: 20220712
  Receipt Date: 20220712
  Transmission Date: 20221027
  Serious: Yes (Hospitalization)
  Sender: FDA-Public Use
  Company Number: None

PATIENT
  Age: 72 Year
  Sex: Female
  Weight: 69.6 kg

DRUGS (1)
  1. REVLIMID [Suspect]
     Active Substance: LENALIDOMIDE
     Indication: Plasma cell myeloma
     Dosage: OTHER FREQUENCY : DAILY X21 DAYS;?
     Route: 048
     Dates: start: 20220127, end: 20220627

REACTIONS (5)
  - Bacterial infection [None]
  - Suprapubic pain [None]
  - Blood lactic acid decreased [None]
  - Culture urine positive [None]
  - Therapy interrupted [None]

NARRATIVE: CASE EVENT DATE: 20220623
